FAERS Safety Report 17221847 (Version 1)
Quarter: 2020Q1

REPORT INFORMATION
  Report Type: Report from Study
  Country: US (occurrence: US)
  Receive Date: 20200101
  Receipt Date: 20200101
  Transmission Date: 20200409
  Serious: Yes (Death)
  Sender: FDA-Public Use
  Company Number: US-ROCHE-2510127

PATIENT
  Age: 16 Year
  Sex: Male

DRUGS (10)
  1. PREDNISONE. [Suspect]
     Active Substance: PREDNISONE
     Indication: GLOMERULONEPHRITIS MEMBRANOUS
     Route: 065
  2. SIROLIMUS. [Suspect]
     Active Substance: SIROLIMUS
     Indication: GLOMERULONEPHRITIS MEMBRANOUS
     Route: 065
  3. FOSCARNET [Suspect]
     Active Substance: FOSCARNET
     Route: 042
     Dates: start: 20150716, end: 20150806
  4. MYCOPHENOLATE MOFETIL. [Suspect]
     Active Substance: MYCOPHENOLATE MOFETIL
     Indication: GLOMERULONEPHRITIS MEMBRANOUS
     Route: 065
  5. FOSCARNET [Suspect]
     Active Substance: FOSCARNET
     Route: 042
     Dates: start: 20150512, end: 20150610
  6. FOSCARNET [Suspect]
     Active Substance: FOSCARNET
     Route: 042
     Dates: start: 20150923, end: 20170917
  7. VALGANCICLOVIR. [Suspect]
     Active Substance: VALGANCICLOVIR
     Indication: CYTOMEGALOVIRUS COLITIS
     Route: 048
     Dates: start: 20140109, end: 20150305
  8. CIDOFOVIR. [Suspect]
     Active Substance: CIDOFOVIR
     Indication: CYTOMEGALOVIRUS COLITIS
     Route: 065
  9. FOSCARNET [Suspect]
     Active Substance: FOSCARNET
     Indication: CYTOMEGALOVIRUS COLITIS
     Route: 042
     Dates: start: 20150330, end: 20150421
  10. GANCICLOVIR. [Suspect]
     Active Substance: GANCICLOVIR
     Indication: CYTOMEGALOVIRUS COLITIS
     Route: 042
     Dates: start: 20150305, end: 20150330

REACTIONS (2)
  - Drug resistance [Fatal]
  - Cytomegalovirus colitis [Fatal]
